FAERS Safety Report 22536942 (Version 1)
Quarter: 2023Q2

REPORT INFORMATION
  Report Type: Spontaneous
  Country: US (occurrence: None)
  Receive Date: 20230607
  Receipt Date: 20230607
  Transmission Date: 20230721
  Serious: Yes (Other)
  Sender: FDA-Public Use
  Company Number: None

PATIENT
  Age: 53 Year
  Sex: Female
  Weight: 108.86 kg

DRUGS (2)
  1. OZEMPIC [Suspect]
     Active Substance: SEMAGLUTIDE
     Indication: Weight decreased
     Dosage: FREQUENCY : WEEKLY;?
     Route: 058
     Dates: start: 20221110, end: 20230320
  2. OZEMPIC [Concomitant]
     Active Substance: SEMAGLUTIDE

REACTIONS (1)
  - Medullary thyroid cancer [None]

NARRATIVE: CASE EVENT DATE: 20230324
